FAERS Safety Report 5805363-8 (Version None)
Quarter: 2008Q3

REPORT INFORMATION
  Report Type: 
  Country: None (occurrence: None)
  Receive Date: 20080702
  Receipt Date: 20070531
  Transmission Date: 20090109
  Serious: Yes (Other)
  Sender: FDA-Public Use
  Company Number: HQWYE453101JUN07

PATIENT
  Age: 61 Year
  Sex: Female
  Weight: 59.02 kg

DRUGS (1)
  1. ADVIL [Suspect]
     Indication: HEADACHE
     Dosage: 2 TABLETS, 1 TIME, ORAL
     Route: 048
     Dates: start: 20070530, end: 20070530

REACTIONS (1)
  - RESTLESSNESS [None]
